FAERS Safety Report 7479858 (Version 3)
Quarter: 2012Q4

REPORT INFORMATION
  Report Type: Report from Study
  Country: FR (occurrence: FR)
  Receive Date: 20100716
  Receipt Date: 20120928
  Transmission Date: 20130627
  Serious: Yes (Hospitalization, Other)
  Sender: FDA-Public Use
  Company Number: FR-ABBOTT-10P-056-0618837-00

PATIENT
  Age: 48 Year
  Sex: Female

DRUGS (5)
  1. HUMIRA [Suspect]
     Indication: CROHN^S DISEASE
     Route: 058
     Dates: start: 20080903, end: 20091209
  2. MESALAZINE [Concomitant]
     Indication: CROHN^S DISEASE
     Dates: start: 20100120
  3. VASTAREL [Concomitant]
     Indication: DEAFNESS
     Dates: start: 200709
  4. VASTAREL [Concomitant]
     Indication: VERTIGO
  5. AVLOCARDYL [Concomitant]
     Indication: TACHYCARDIA
     Dates: start: 200801

REACTIONS (3)
  - Myalgia [Recovered/Resolved]
  - Muscular weakness [Recovered/Resolved]
  - Multiple sclerosis [Not Recovered/Not Resolved]
